FAERS Safety Report 20559411 (Version 1)
Quarter: 2022Q1

REPORT INFORMATION
  Report Type: Spontaneous
  Country: NO (occurrence: NO)
  Receive Date: 20220307
  Receipt Date: 20220307
  Transmission Date: 20220423
  Serious: Yes (Hospitalization)
  Sender: FDA-Public Use
  Company Number: NO-GLAXOSMITHKLINE-2021/11163

PATIENT

DRUGS (3)
  1. LAMICTAL [Suspect]
     Active Substance: LAMOTRIGINE
     Indication: Bipolar II disorder
     Dosage: 400 MG
     Dates: start: 20201214, end: 20211117
  2. LAMICTAL [Suspect]
     Active Substance: LAMOTRIGINE
     Dosage: 600 MG
  3. LAMICTAL [Suspect]
     Active Substance: LAMOTRIGINE
     Dosage: 200 MG

REACTIONS (18)
  - Fall [Unknown]
  - Mobility decreased [Unknown]
  - Hypoaesthesia [Unknown]
  - Dizziness [Unknown]
  - Diplopia [Unknown]
  - Headache [Unknown]
  - General physical health deterioration [Unknown]
  - Lethargy [Unknown]
  - Apathy [Unknown]
  - Photophobia [Unknown]
  - Excessive eye blinking [Unknown]
  - Fatigue [Unknown]
  - Decreased activity [Unknown]
  - Performance status decreased [Unknown]
  - Dysstasia [Unknown]
  - Complement factor increased [Unknown]
  - Product prescribing issue [Unknown]
  - Overdose [Unknown]

NARRATIVE: CASE EVENT DATE: 20211018
